FAERS Safety Report 13465882 (Version 1)
Quarter: 2017Q2

REPORT INFORMATION
  Report Type: Report from Study
  Country: CA (occurrence: CA)
  Receive Date: 20170421
  Receipt Date: 20170421
  Transmission Date: 20170830
  Serious: Yes (Hospitalization)
  Sender: FDA-Public Use
  Company Number: CA-ROCHE-ITM201503IM011452

PATIENT
  Age: 76 Year
  Sex: Male
  Weight: 100.5 kg

DRUGS (12)
  1. VITAMIN C [Concomitant]
     Active Substance: ASCORBIC ACID
  2. ESBRIET [Suspect]
     Active Substance: PIRFENIDONE
     Route: 048
  3. VITAMIN B12 [Concomitant]
     Active Substance: CYANOCOBALAMIN
  4. ESBRIET [Suspect]
     Active Substance: PIRFENIDONE
     Indication: IDIOPATHIC PULMONARY FIBROSIS
     Route: 048
     Dates: start: 20150303
  5. NIFEDIPINE. [Concomitant]
     Active Substance: NIFEDIPINE
  6. IRBESARTAN. [Concomitant]
     Active Substance: IRBESARTAN
  7. AMLODIPINE [Concomitant]
     Active Substance: AMLODIPINE BESYLATE
  8. ELTROXIN [Concomitant]
     Active Substance: LEVOTHYROXINE
  9. ESBRIET [Suspect]
     Active Substance: PIRFENIDONE
     Route: 048
     Dates: start: 201503
  10. ROSUVASTATIN. [Concomitant]
     Active Substance: ROSUVASTATIN
  11. TYLENOL [Concomitant]
     Active Substance: ACETAMINOPHEN
  12. ASA [Concomitant]
     Active Substance: ASPIRIN

REACTIONS (5)
  - Viral upper respiratory tract infection [Not Recovered/Not Resolved]
  - Dyspnoea [Not Recovered/Not Resolved]
  - Weight decreased [Unknown]
  - Pulmonary function test abnormal [Unknown]
  - Carbon monoxide diffusing capacity decreased [Unknown]

NARRATIVE: CASE EVENT DATE: 20150307
